FAERS Safety Report 7803563-9 (Version None)
Quarter: 2011Q4

REPORT INFORMATION
  Report Type: 
  Country: None (occurrence: None)
  Receive Date: 20111009
  Receipt Date: 20111002
  Transmission Date: 20120403
  Serious: No
  Sender: FDA-Public Use
  Company Number: US-B.I. PHARMACEUTICALS,INC./RIDGEFIELD-2011-BP-23280BP

PATIENT
  Sex: Female

DRUGS (4)
  1. XANAX [Concomitant]
     Indication: ANXIETY
     Route: 048
     Dates: start: 20090101
  2. PRADAXA [Suspect]
     Indication: ATRIAL FIBRILLATION
     Dosage: 300 MG
     Route: 048
     Dates: start: 20110918
  3. COREG [Concomitant]
     Indication: ATRIAL FIBRILLATION
     Dosage: 12.5 MG
     Route: 048
     Dates: start: 20090101
  4. ASPIRIN [Suspect]
     Indication: THROMBOSIS PROPHYLAXIS
     Dosage: 325 MG
     Route: 048
     Dates: start: 20080901, end: 20110930

REACTIONS (4)
  - OROPHARYNGEAL PAIN [None]
  - ATRIAL FIBRILLATION [None]
  - HAEMORRHAGE [None]
  - THROAT IRRITATION [None]
